FAERS Safety Report 8350336-7 (Version None)
Quarter: 2012Q2

REPORT INFORMATION
  Report Type: 
  Country: None (occurrence: None)
  Receive Date: 20120510
  Receipt Date: 20120430
  Transmission Date: 20120825
  Serious: Yes (Hospitalization)
  Sender: FDA-Public Use
  Company Number: ES-ROCHE-1064764

PATIENT
  Age: 67 Year
  Sex: Female
  Weight: 58 kg

DRUGS (12)
  1. VEMURAFENIB [Suspect]
     Indication: MALIGNANT MELANOMA
     Dosage: LAST DOSE PRIOR TO SAE ON 26/APR/2012
     Route: 048
     Dates: start: 20120416, end: 20120429
  2. ATORVASTATIN CALCIUM [Concomitant]
     Dates: start: 20111230
  3. ALENDRONIC ACID [Concomitant]
     Dates: start: 20120217
  4. DOXAZOSINA [Concomitant]
     Dates: start: 20111230
  5. LORMETAZEPAM [Concomitant]
     Dates: start: 20111230
  6. TACROLIMUS [Concomitant]
  7. CALCIUM [Concomitant]
     Dates: start: 20111230
  8. COLECALCIFEROL [Concomitant]
     Dates: start: 20111230
  9. GLUCOSAMINE [Concomitant]
     Dates: start: 20100212
  10. RANITIDINE HCL [Concomitant]
     Dates: start: 20110912
  11. EVEROLIMUS [Concomitant]
     Dates: start: 20051101
  12. CARVEDILOL [Concomitant]
     Dates: start: 20091020

REACTIONS (1)
  - BLOOD CREATININE INCREASED [None]
